FAERS Safety Report 7884862-1 (Version None)
Quarter: 2011Q4

REPORT INFORMATION
  Report Type: 
  Country: None (occurrence: None)
  Receive Date: 20111102
  Receipt Date: 20111026
  Transmission Date: 20120403
  Serious: Yes (Hospitalization, Other)
  Sender: FDA-Public Use
  Company Number: PHEH2011US04026

PATIENT
  Sex: Female

DRUGS (1)
  1. GILENYA [Suspect]
     Indication: RELAPSING-REMITTING MULTIPLE SCLEROSIS
     Dosage: 0.5 MG, QD
     Route: 048
     Dates: start: 20110816, end: 20111003

REACTIONS (5)
  - MEMORY IMPAIRMENT [None]
  - CONDITION AGGRAVATED [None]
  - AFFECTIVE DISORDER [None]
  - DEPRESSION [None]
  - MOOD ALTERED [None]
